FAERS Safety Report 20577969 (Version 2)
Quarter: 2022Q1

REPORT INFORMATION
  Report Type: Report from Study
  Country: CA (occurrence: CA)
  Receive Date: 20220310
  Receipt Date: 20220328
  Transmission Date: 20220423
  Serious: Yes (Hospitalization, Other)
  Sender: FDA-Public Use
  Company Number: CA-SA-SAC20220309001594

PATIENT
  Age: 67 Year
  Sex: Male
  Weight: 87.2 kg

DRUGS (17)
  1. ISATUXIMAB [Suspect]
     Active Substance: ISATUXIMAB
     Dosage: 10 MG, 1X
     Route: 042
     Dates: start: 20220224
  2. CYCLOPHOSPHAMIDE [Concomitant]
     Active Substance: CYCLOPHOSPHAMIDE
  3. LEVOFLOXACIN [Concomitant]
     Active Substance: LEVOFLOXACIN
     Indication: Pneumonia
     Route: 048
     Dates: start: 20220309
  4. FLUCONAZOLE [Concomitant]
     Active Substance: FLUCONAZOLE
     Indication: Pneumonia
  5. LEVOTHYROXIN KSA [Concomitant]
     Indication: Hypothyroidism
     Dosage: 0.1 MG, QD
     Dates: start: 2007
  6. CANDESARTAN CILEXETIL\HYDROCHLOROTHIAZIDE [Concomitant]
     Active Substance: CANDESARTAN CILEXETIL\HYDROCHLOROTHIAZIDE
     Indication: Hypertension
     Dosage: 4 MG, QD
     Dates: start: 2017, end: 20220306
  7. PRAVASTATIN SODIUM [Concomitant]
     Active Substance: PRAVASTATIN SODIUM
     Indication: Blood cholesterol increased
     Dosage: 20 MG, QD
     Dates: start: 2010, end: 20220306
  8. JANUMET [Concomitant]
     Active Substance: METFORMIN HYDROCHLORIDE\SITAGLIPTIN PHOSPHATE
     Indication: Hyperglycaemia
     Dosage: 500 MG
     Dates: start: 2002
  9. VITAMIN B12 [Concomitant]
     Active Substance: CYANOCOBALAMIN
     Indication: Prophylaxis
     Dosage: 1 DF, QD
     Dates: start: 2019
  10. VITAMIN C [Concomitant]
     Active Substance: ASCORBIC ACID
     Indication: Prophylaxis
     Dosage: 1000 MG, QD
     Dates: start: 2019
  11. FERROUS FUMARATE\FOLIC ACID [Concomitant]
     Active Substance: FERROUS FUMARATE\FOLIC ACID
     Indication: Prophylaxis
     Dosage: 100 MG, QD
     Dates: start: 2019
  12. ACYCLOVIR SODIUM [Concomitant]
     Active Substance: ACYCLOVIR SODIUM
     Indication: Antibiotic prophylaxis
     Dosage: 400 MG, QD
     Dates: start: 20220224
  13. MONTELUKAST SODIUM [Concomitant]
     Active Substance: MONTELUKAST SODIUM
     Indication: Prophylactic chemotherapy
     Dosage: 10 MG, QD
     Dates: start: 20220224
  14. DEXAMETHASONE PHOSPHATE [Concomitant]
     Active Substance: DEXAMETHASONE PHOSPHATE
     Indication: Prophylactic chemotherapy
     Dosage: 40 MG, QD
     Dates: start: 20220224
  15. PIPERACILLIN SODIUM\TAZOBACTAM SODIUM [Concomitant]
     Active Substance: PIPERACILLIN SODIUM\TAZOBACTAM SODIUM
     Indication: Febrile neutropenia
     Dosage: 4.5 MG, Q6H
     Dates: start: 20220306
  16. HUMAN RED BLOOD CELL [Concomitant]
     Active Substance: HUMAN RED BLOOD CELL
     Indication: Anaemia
     Dosage: 2 U, QD
     Dates: start: 20220307, end: 20220307
  17. OXYGEN [Concomitant]
     Active Substance: OXYGEN
     Indication: Dyspnoea
     Dosage: 2 L, QD
     Dates: start: 20220310, end: 20220311

REACTIONS (2)
  - Febrile neutropenia [Recovered/Resolved]
  - Pyrexia [Not Recovered/Not Resolved]

NARRATIVE: CASE EVENT DATE: 20220306
